FAERS Safety Report 7094703-0 (Version None)
Quarter: 2010Q4

REPORT INFORMATION
  Report Type: 
  Country: None (occurrence: None)
  Receive Date: 20101110
  Receipt Date: 20080716
  Transmission Date: 20110411
  Serious: No
  Sender: FDA-Public Use
  Company Number: US-KINGPHARMUSA00001-K200800850

PATIENT
  Sex: Female

DRUGS (2)
  1. SKELAXIN [Suspect]
     Dosage: UNK, SINGLE
     Dates: start: 20080715, end: 20080715
  2. ULTRAM [Concomitant]

REACTIONS (4)
  - DIZZINESS [None]
  - NAUSEA [None]
  - SOMNOLENCE [None]
  - VOMITING [None]
